FAERS Safety Report 21732729 (Version 1)
Quarter: 2022Q4

REPORT INFORMATION
  Report Type: Spontaneous
  Country: US (occurrence: US)
  Receive Date: 20221215
  Receipt Date: 20221215
  Transmission Date: 20230113
  Serious: No
  Sender: FDA-Public Use
  Company Number: US-BAUSCHBL-2022BNL002683

PATIENT
  Age: 64 Year
  Sex: Female

DRUGS (1)
  1. TROPICAMIDE [Suspect]
     Active Substance: TROPICAMIDE
     Indication: Mydriasis
     Route: 047
     Dates: start: 2022

REACTIONS (1)
  - Instillation site foreign body sensation [Not Recovered/Not Resolved]

NARRATIVE: CASE EVENT DATE: 20221101
